FAERS Safety Report 10133208 (Version 1)
Quarter: 2014Q2

REPORT INFORMATION
  Report Type: Spontaneous
  Country: IT (occurrence: IT)
  Receive Date: 20140428
  Receipt Date: 20140428
  Transmission Date: 20141212
  Serious: Yes (Hospitalization)
  Sender: FDA-Public Use
  Company Number: IT-TEVA-477125ISR

PATIENT
  Age: 67 Year
  Sex: Female

DRUGS (3)
  1. CARBOLITHIUM 150 MG [Suspect]
     Dates: start: 20140101, end: 20140305
  2. SINEMET 100 MG / 25 MG [Suspect]
     Dosage: LEVODOPA 100 MG / CARBIDOPA 25 MG
     Dates: start: 20140101, end: 20140305
  3. LAROXYL 40 MG/ML [Suspect]
     Dates: start: 20140101, end: 20140305

REACTIONS (2)
  - Mutism [Unknown]
  - Psychomotor skills impaired [Unknown]
